FAERS Safety Report 6079058-2 (Version None)
Quarter: 2009Q1

REPORT INFORMATION
  Report Type: 
  Country: None (occurrence: None)
  Receive Date: 20090216
  Receipt Date: 20090202
  Transmission Date: 20090719
  Serious: Yes (Hospitalization)
  Sender: FDA-Public Use
  Company Number: DE-ROCHE-611828

PATIENT
  Sex: Female

DRUGS (6)
  1. CAPECITABINE [Suspect]
     Indication: BREAST CANCER METASTATIC
     Dosage: DOSE AS PER PROTOCOL:2X1000 MG/M2 ORALLY TAKEN APPROX.12 HRS APART DAYS 1-14, Q22 DAYS FOR 4 CYCLES.
     Route: 048
  2. CYCLOPHOSPHAMIDE [Suspect]
     Indication: BREAST CANCER METASTATIC
     Dosage: FREQ REPORTED AS 14 Q.
     Route: 042
     Dates: start: 20070816, end: 20070927
  3. EPIRUBICIN [Suspect]
     Indication: BREAST CANCER METASTATIC
     Dosage: FREQ REPORTED AS 14 Q.
     Route: 042
     Dates: start: 20070818, end: 20070927
  4. PACLITAXEL [Suspect]
     Indication: BREAST CANCER METASTATIC
     Dosage: FREQ REPORTED AS 14 Q.
     Route: 042
     Dates: start: 20071010
  5. EPOETIN BETA [Suspect]
     Indication: BREAST CANCER METASTATIC
     Dosage: FREQ REPORTED AS 7 Q. DRUG NAME REPORTED AS NEORECORMON
     Route: 042
     Dates: start: 20070830
  6. NEULASTA [Concomitant]
     Dosage: FREQ 14 Q.
     Route: 058
     Dates: start: 20070817

REACTIONS (2)
  - COR PULMONALE [None]
  - PULMONARY EMBOLISM [None]
